FAERS Safety Report 6099597-8 (Version None)
Quarter: 2009Q1

REPORT INFORMATION
  Report Type: 
  Country: None (occurrence: None)
  Receive Date: 20090303
  Receipt Date: 20090220
  Transmission Date: 20090719
  Serious: Yes (Hospitalization)
  Sender: FDA-Public Use
  Company Number: CN-SANOFI-SYNTHELABO-F01200900183

PATIENT
  Sex: Male
  Weight: 80 kg

DRUGS (6)
  1. DEXAMETHASONE [Concomitant]
     Dosage: 5 MG
     Route: 065
     Dates: start: 20090202, end: 20090202
  2. TROPISETRON [Concomitant]
     Dosage: 6 MG
     Route: 065
     Dates: start: 20090202, end: 20090202
  3. METOCLOPRAMIDE [Concomitant]
     Dosage: 20 MG
     Route: 065
     Dates: start: 20090202, end: 20090202
  4. CAPECITABINE [Suspect]
     Dosage: DAYS 1-15 (2 WEEKS ON TREATMENT, 1 WEEK REST) 2 G
     Route: 048
     Dates: start: 20090202, end: 20090208
  5. OXALIPLATIN [Suspect]
     Indication: GASTRIC CANCER
     Dosage: 250 MG
     Route: 041
     Dates: start: 20090202, end: 20090202
  6. DIAZEPAM [Concomitant]
     Dosage: 10 MG
     Route: 065
     Dates: start: 20090202, end: 20090202

REACTIONS (2)
  - CHOLECYSTITIS ACUTE [None]
  - INTESTINAL OBSTRUCTION [None]
